FAERS Safety Report 8350070-3 (Version None)
Quarter: 2012Q2

REPORT INFORMATION
  Report Type: 
  Country: None (occurrence: None)
  Receive Date: 20120510
  Receipt Date: 20120504
  Transmission Date: 20120825
  Serious: No
  Sender: FDA-Public Use
  Company Number: US-PFIZER INC-2012091242

PATIENT
  Sex: Female
  Weight: 63.492 kg

DRUGS (8)
  1. ZYVOX [Suspect]
     Indication: STAPHYLOCOCCAL INFECTION
  2. KEFLEX [Suspect]
     Indication: FURUNCLE
     Dosage: 500 MG, 3X/DAY
     Dates: start: 20120406, end: 20120409
  3. BACTRIM [Suspect]
     Indication: FURUNCLE
     Dosage: UNK
     Dates: start: 20120402, end: 20120406
  4. BACTRIM [Suspect]
     Indication: BLOODY DISCHARGE
  5. KEFLEX [Suspect]
     Indication: BLOODY DISCHARGE
  6. ZYVOX [Suspect]
     Indication: FURUNCLE
     Dosage: 600 MG, 2X/DAY
     Dates: start: 20120409
  7. ZYVOX [Suspect]
     Indication: BLOODY DISCHARGE
  8. HYDROCHLOROTHIAZIDE [Concomitant]
     Indication: HYPERTENSION
     Dosage: 25 MG, DAILY

REACTIONS (4)
  - DRUG INEFFECTIVE [None]
  - MEDICATION ERROR [None]
  - FURUNCLE [None]
  - BLOODY DISCHARGE [None]
